FAERS Safety Report 7167943-X (Version None)
Quarter: 2010Q4

REPORT INFORMATION
  Report Type: 
  Country: None (occurrence: None)
  Receive Date: 20101216
  Receipt Date: 20101206
  Transmission Date: 20110411
  Serious: Yes (Hospitalization)
  Sender: FDA-Public Use
  Company Number: US-CELGENEUS-163-20785-10112288

PATIENT
  Sex: Male

DRUGS (3)
  1. THALOMID [Suspect]
     Route: 048
     Dates: start: 20101001, end: 20100101
  2. THALOMID [Suspect]
     Route: 048
     Dates: start: 20101001
  3. THALOMID [Suspect]
     Route: 048
     Dates: start: 20101101

REACTIONS (4)
  - BODY TEMPERATURE DECREASED [None]
  - DISORIENTATION [None]
  - DIZZINESS [None]
  - MALAISE [None]
